FAERS Safety Report 25364417 (Version 1)
Quarter: 2025Q2

REPORT INFORMATION
  Report Type: Spontaneous
  Country: JP (occurrence: JP)
  Receive Date: 20250527
  Receipt Date: 20250527
  Transmission Date: 20250716
  Serious: Yes (Other)
  Sender: PFIZER
  Company Number: JP-PFIZER INC-202500107154

PATIENT

DRUGS (1)
  1. RITUXIMAB [Suspect]
     Active Substance: RITUXIMAB
     Indication: Immune thrombocytopenia

REACTIONS (2)
  - Immune thrombocytopenia [Unknown]
  - Condition aggravated [Unknown]
